FAERS Safety Report 11030908 (Version 2)
Quarter: 2015Q2

REPORT INFORMATION
  Report Type: Spontaneous
  Country: FR (occurrence: FR)
  Receive Date: 20150415
  Receipt Date: 20150608
  Transmission Date: 20150821
  Serious: Yes (Hospitalization, Other)
  Sender: FDA-Public Use
  Company Number: FR-ALEXION PHARMACEUTICALS INC.-A201501213

PATIENT

DRUGS (9)
  1. GANCICLOVIR. [Concomitant]
     Active Substance: GANCICLOVIR
     Indication: CYTOMEGALOVIRUS INFECTION
     Dosage: UNK
     Route: 065
     Dates: end: 20150404
  2. VACCINES [Concomitant]
     Active Substance: UNSPECIFIED INGREDIENT
     Indication: IMMUNISATION
     Dosage: UNK
     Route: 065
     Dates: start: 20150330, end: 20150330
  3. NEFOPAM [Concomitant]
     Active Substance: NEFOPAM
     Indication: PAIN
     Dosage: 20 MG, 4 TIMES A DAY IF PAIN
     Route: 065
  4. SOLIRIS [Suspect]
     Active Substance: ECULIZUMAB
     Indication: ESCHERICHIA BACTERAEMIA
  5. SOLIRIS [Suspect]
     Active Substance: ECULIZUMAB
     Indication: THROMBOTIC MICROANGIOPATHY
     Dosage: 900 MG, UNK
     Route: 042
     Dates: start: 20150330
  6. SOLIRIS [Suspect]
     Active Substance: ECULIZUMAB
     Indication: OFF LABEL USE
  7. IMIPENEM [Concomitant]
     Active Substance: IMIPENEM
     Indication: SEPSIS
     Dosage: UNK
     Route: 065
     Dates: end: 20150403
  8. ORACILLINE                         /00001801/ [Concomitant]
     Active Substance: PENICILLIN V BENZATHINE
     Indication: INFECTION PROPHYLAXIS
     Dosage: 2 MILLION IU, QD
     Route: 065
  9. PREDNISONE. [Concomitant]
     Active Substance: PREDNISONE
     Indication: THROMBOTIC MICROANGIOPATHY
     Dosage: 50 MG, QD
     Route: 065

REACTIONS (9)
  - Platelet count abnormal [Unknown]
  - Haemoglobin abnormal [Unknown]
  - ADAMTS13 activity abnormal [Unknown]
  - Off label use [Unknown]
  - Acute kidney injury [Unknown]
  - Pulmonary oedema [Unknown]
  - Condition aggravated [Not Recovered/Not Resolved]
  - Acute respiratory failure [Unknown]
  - Blood creatinine abnormal [Unknown]

NARRATIVE: CASE EVENT DATE: 20150331
